FAERS Safety Report 8139990-2 (Version None)
Quarter: 2012Q1

REPORT INFORMATION
  Report Type: 
  Country: None (occurrence: None)
  Receive Date: 20120215
  Receipt Date: 20120208
  Transmission Date: 20120608
  Serious: Yes (Hospitalization)
  Sender: FDA-Public Use
  Company Number: FR-MERCK-1202USA01822

PATIENT
  Age: 58 Year
  Sex: Female

DRUGS (6)
  1. DOMPERIDONE [Suspect]
     Route: 048
     Dates: end: 20111112
  2. ONDANSETRON [Suspect]
     Route: 065
     Dates: start: 20111017, end: 20111026
  3. EMEND [Suspect]
     Route: 048
     Dates: start: 20111017, end: 20111026
  4. PANTOPRAZOLE [Suspect]
     Route: 048
     Dates: end: 20111112
  5. DESLORATADINE [Suspect]
     Route: 065
     Dates: start: 20111014, end: 20111030
  6. PLITICAN [Suspect]
     Route: 042
     Dates: start: 20111017, end: 20111107

REACTIONS (3)
  - PRURITUS [None]
  - RASH ERYTHEMATOUS [None]
  - BLISTER [None]
